FAERS Safety Report 24237363 (Version 1)
Quarter: 2024Q3

REPORT INFORMATION
  Report Type: Spontaneous
  Country: ES (occurrence: ES)
  Receive Date: 20240822
  Receipt Date: 20240822
  Transmission Date: 20241017
  Serious: Yes (Other)
  Sender: JOHNSON AND JOHNSON
  Company Number: ES-JNJFOC-20240454855

PATIENT
  Age: 58 Year
  Sex: Male
  Weight: 92 kg

DRUGS (2)
  1. TREMFYA [Suspect]
     Active Substance: GUSELKUMAB
     Indication: Product used for unknown indication
     Route: 065
     Dates: start: 202401
  2. ASPIRIN [Concomitant]
     Active Substance: ASPIRIN
     Dates: start: 202405

REACTIONS (6)
  - Gastritis erosive [Unknown]
  - Epistaxis [Unknown]
  - Muscle spasms [Unknown]
  - Dysuria [Unknown]
  - Upper-airway cough syndrome [Unknown]
  - Lacrimation increased [Unknown]
